FAERS Safety Report 15837113 (Version 3)
Quarter: 2019Q1

REPORT INFORMATION
  Report Type: Spontaneous
  Country: US (occurrence: US)
  Receive Date: 20190117
  Receipt Date: 20190305
  Transmission Date: 20190417
  Serious: Yes (Other)
  Sender: FDA-Public Use
  Company Number: US-GALDERMA-US19002314

PATIENT
  Age: 16 Year
  Sex: Male

DRUGS (7)
  1. ACNUTROL [Concomitant]
  2. MONOLAURIN [Concomitant]
  3. ORACEA [Suspect]
     Active Substance: DOXYCYCLINE
     Indication: ACNE
     Route: 048
     Dates: start: 201810, end: 201812
  4. IMMUNOSELECT [Concomitant]
  5. KEEVA ORGANICS ACNE TREATMENT [Suspect]
     Active Substance: SALICYLIC ACID
  6. VITAMIN C [Concomitant]
     Active Substance: ASCORBIC ACID
  7. VITAMIN D [Concomitant]
     Active Substance: CHOLECALCIFEROL

REACTIONS (3)
  - Suspected suicide attempt [Unknown]
  - Depressed mood [Unknown]
  - Product administered to patient of inappropriate age [Recovered/Resolved]

NARRATIVE: CASE EVENT DATE: 201810
